FAERS Safety Report 8847206 (Version 1)
Quarter: 2012Q4

REPORT INFORMATION
  Report Type: Spontaneous
  Country: CH (occurrence: None)
  Receive Date: 20121015
  Receipt Date: 20121015
  Transmission Date: 20130627
  Serious: Yes (Other)
  Sender: FDA-Public Use
  Company Number: 20120632

PATIENT
  Age: 17 Year
  Sex: Female

DRUGS (1)
  1. VENOFER [Suspect]
     Indication: IRON DEFICIENCY ANEMIA
     Dosage: 300 mg 1 in 1 total
     Route: 041
     Dates: start: 20120622, end: 20120622

REACTIONS (7)
  - Throat irritation [None]
  - Oedema peripheral [None]
  - Hypotension [None]
  - Type I hypersensitivity [None]
  - Pharyngeal oedema [None]
  - Drug administration error [None]
  - Incorrect drug administration duration [None]
